FAERS Safety Report 22105434 (Version 1)
Quarter: 2023Q1

REPORT INFORMATION
  Report Type: Spontaneous
  Country: US (occurrence: None)
  Receive Date: 20230317
  Receipt Date: 20230317
  Transmission Date: 20230418
  Serious: No
  Sender: FDA-Public Use
  Company Number: 2023A040879

PATIENT
  Age: 88 Year
  Sex: Female
  Weight: 67.6 kg

DRUGS (1)
  1. BRILINTA [Suspect]
     Active Substance: TICAGRELOR
     Indication: Myocardial infarction
     Route: 048
     Dates: start: 202208

REACTIONS (2)
  - Onychoclasis [Unknown]
  - Contusion [Unknown]

NARRATIVE: CASE EVENT DATE: 20220101
